FAERS Safety Report 7774744-8 (Version None)
Quarter: 2011Q3

REPORT INFORMATION
  Report Type: 
  Country: None (occurrence: None)
  Receive Date: 20110923
  Receipt Date: 20110915
  Transmission Date: 20111222
  Serious: Yes (Hospitalization, Other)
  Sender: FDA-Public Use
  Company Number: US-ROCHE-795718

PATIENT
  Sex: Male
  Weight: 70.3 kg

DRUGS (24)
  1. ACTEMRA [Suspect]
     Route: 042
     Dates: start: 20110804
  2. FOLIC ACID [Concomitant]
     Route: 048
  3. ORENCIA [Concomitant]
     Route: 042
     Dates: start: 20110108
  4. SODIUM CHLORIDE INJ [Concomitant]
     Route: 042
     Dates: start: 20110502
  5. ENALAPRIL MALEATE [Concomitant]
     Route: 048
  6. VERAPAMIL [Concomitant]
     Route: 048
  7. ACTEMRA [Suspect]
     Indication: RHEUMATOID ARTHRITIS
     Route: 042
     Dates: start: 20110504
  8. FAMOTIDINE [Concomitant]
     Indication: RHEUMATOID ARTHRITIS
     Dosage: USED AS DIRECTED.
     Route: 042
     Dates: start: 20110502
  9. MULTIVITAMIN NOS [Concomitant]
     Dosage: 1 TABLET
     Route: 048
  10. SODIUM CHLORIDE INJ [Concomitant]
     Indication: RHEUMATOID ARTHRITIS
     Route: 042
     Dates: start: 20100511
  11. SODIUM CHLORIDE INJ [Concomitant]
     Route: 042
     Dates: start: 20110103
  12. MUCINEX [Concomitant]
     Dosage: AS DIRECTED
     Route: 048
  13. ACTEMRA [Suspect]
     Route: 042
     Dates: start: 20110601
  14. EPINEPHRINE [Concomitant]
     Indication: RHEUMATOID ARTHRITIS
     Dosage: USED AS DIRECTED
     Route: 042
     Dates: start: 20110502
  15. PRAVASTATIN [Concomitant]
     Route: 048
     Dates: start: 20110110
  16. VITAMIN D [Concomitant]
     Route: 048
  17. IBUPROFEN [Concomitant]
     Dosage: AS NEEDED
     Route: 048
     Dates: start: 20110106
  18. ACTEMRA [Suspect]
     Route: 042
     Dates: start: 20110705
  19. CALCIUM CARBONATE [Concomitant]
     Route: 048
  20. METHOTREXATE SODIUM [Concomitant]
     Dosage: USED AS DIRECTED
     Route: 048
     Dates: start: 20100804
  21. FISH OIL [Concomitant]
     Route: 048
  22. HYDROCHLOROTHIAZIDE [Concomitant]
     Dosage: 1 OR 2 TABLETS
     Route: 048
  23. PEPCID [Concomitant]
     Dosage: AS NEEDED
     Route: 048
  24. ORENCIA [Concomitant]
     Indication: RHEUMATOID ARTHRITIS
     Route: 042
     Dates: start: 20100511

REACTIONS (4)
  - PAIN [None]
  - ABDOMINAL DISCOMFORT [None]
  - HYPERAESTHESIA [None]
  - GASTROINTESTINAL PAIN [None]
